FAERS Safety Report 8852483 (Version 1)
Quarter: 2012Q4

REPORT INFORMATION
  Report Type: 
  Country: FR (occurrence: FR)
  Receive Date: 20121022
  Receipt Date: 20121022
  Transmission Date: 20130627
  Serious: Yes (Hospitalization)
  Sender: FDA-Public Use
  Company Number: FR-009507513-1210FRA008960

PATIENT
  Age: 81 Year
  Sex: Female
  Weight: 35 kg

DRUGS (3)
  1. SINEMET 100 MG / 10 MG COMPRIME SECABLE [Suspect]
     Indication: PARKINSON^S DISEASE
     Dosage: UNK
     Dates: start: 2000
  2. LYSANXIA [Concomitant]
  3. MODOPAR [Concomitant]

REACTIONS (4)
  - Treatment failure [Unknown]
  - Fatigue [Not Recovered/Not Resolved]
  - Dyspnoea [Not Recovered/Not Resolved]
  - Weight decreased [Not Recovered/Not Resolved]
